FAERS Safety Report 8283644-9 (Version None)
Quarter: 2012Q2

REPORT INFORMATION
  Report Type: 
  Country: None (occurrence: None)
  Receive Date: 20120413
  Receipt Date: 20120405
  Transmission Date: 20120825
  Serious: Yes (Other)
  Sender: FDA-Public Use
  Company Number: PHHY2012TT029881

PATIENT
  Age: 49 Year
  Sex: Male

DRUGS (9)
  1. METFORMIN HCL [Concomitant]
     Dosage: 500 MG, BID
  2. VYTORIN [Concomitant]
     Dosage: 40/10 UKN, UNK
  3. TRIMETAZIDINE [Concomitant]
     Dosage: UNK UKN, UNK
  4. DIOVAN [Suspect]
     Indication: HYPERTENSION
     Dosage: 160 MG, UNK
     Dates: start: 20110915
  5. CLOPIDOGREL [Concomitant]
     Dosage: 75 MG, QOD
  6. ATENOLOL [Concomitant]
     Dosage: 25 MG, UNK
  7. ASPIRIN [Concomitant]
     Dosage: 81 MG, UNK
  8. FISH OIL [Concomitant]
     Dosage: UNK UKN, UNK
  9. FOLIC ACID [Concomitant]
     Dosage: UNK UKN, UNK

REACTIONS (1)
  - APHASIA [None]
